FAERS Safety Report 7900200-X (Version None)
Quarter: 2011Q4

REPORT INFORMATION
  Report Type: 
  Country: None (occurrence: None)
  Receive Date: 20111104
  Receipt Date: 20111024
  Transmission Date: 20120403
  Serious: Yes (Life-Threatening, Hospitalization, Other)
  Sender: FDA-Public Use
  Company Number: 2011P1009705

PATIENT
  Age: 50 Year
  Sex: Female

DRUGS (3)
  1. METOPROLOL SUCCINATE [Concomitant]
  2. HYDROCORTISONE [Suspect]
     Indication: HYPERSENSITIVITY
     Dosage: 125 MG;X1;IV
     Route: 042
  3. AMLODIPINE [Concomitant]

REACTIONS (16)
  - RESPIRATORY RATE INCREASED [None]
  - METABOLIC ACIDOSIS [None]
  - RESPIRATORY DISTRESS [None]
  - RENAL TUBULAR NECROSIS [None]
  - RESPIRATORY ACIDOSIS [None]
  - PULMONARY OEDEMA [None]
  - GLYCOGEN STORAGE DISORDER [None]
  - MYOCARDITIS [None]
  - PNEUMONIA [None]
  - RENAL ISCHAEMIA [None]
  - ANOXIA [None]
  - HYPERHIDROSIS [None]
  - HYPERSENSITIVITY [None]
  - ADRENAL MASS [None]
  - CHEST DISCOMFORT [None]
  - PALPITATIONS [None]
